FAERS Safety Report 5949489-7 (Version None)
Quarter: 2008Q4

REPORT INFORMATION
  Report Type: 
  Country: None (occurrence: None)
  Receive Date: 20081112
  Receipt Date: 20081104
  Transmission Date: 20090506
  Serious: Yes (Other)
  Sender: FDA-Public Use
  Company Number: PHHY2008IE27106

PATIENT
  Age: 68 Year
  Sex: Male

DRUGS (2)
  1. EXFORGE [Suspect]
     Indication: HYPERTENSION
     Dosage: 80 MG VALSARTAN/5 MG AMLODIPINE
     Dates: start: 20080701
  2. EXFORGE [Suspect]
     Dosage: 160 MG VALSARTAN/5 MG AMLODIPINE
     Dates: end: 20080901

REACTIONS (5)
  - ACNE [None]
  - NECROSIS [None]
  - PRURITUS [None]
  - RASH [None]
  - SCAB [None]
